FAERS Safety Report 9217549 (Version 1)
Quarter: 2013Q2

REPORT INFORMATION
  Report Type: Other
  Country: PL (occurrence: PL)
  Receive Date: 20130408
  Receipt Date: 20130408
  Transmission Date: 20140414
  Serious: Yes (Hospitalization)
  Sender: FDA-Public Use
  Company Number: PL-ACTAVIS-2013-06290

PATIENT
  Age: 19 Year
  Sex: Male

DRUGS (1)
  1. IBUPROFEN (UNKNOWN) [Suspect]
     Indication: UPPER RESPIRATORY TRACT INFECTION
     Dosage: DOSE: 3 TABLETS
     Route: 048
     Dates: start: 20130303, end: 20130304

REACTIONS (1)
  - Rash morbilliform [Unknown]
